FAERS Safety Report 19984656 (Version 1)
Quarter: 2021Q4

REPORT INFORMATION
  Report Type: Spontaneous
  Country: US (occurrence: US)
  Receive Date: 20211022
  Receipt Date: 20211022
  Transmission Date: 20220303
  Serious: No
  Sender: FDA-Public Use
  Company Number: US-BAUSCH-BL-2021-034710

PATIENT
  Age: 26 Year
  Sex: Female
  Weight: 83.99 kg

DRUGS (1)
  1. ALDARA [Suspect]
     Active Substance: IMIQUIMOD
     Indication: Anogenital warts
     Dosage: AT BEDTIME AND LEAVE ON FOR EIGHT HOURS THEN WASH OFF THREE TIMES PER WEEK FOR 16 WEEKS.
     Route: 061

REACTIONS (3)
  - Anogenital warts [Unknown]
  - Condition aggravated [Unknown]
  - Therapeutic product effect incomplete [Unknown]
